FAERS Safety Report 10227898 (Version 2)
Quarter: 2014Q2

REPORT INFORMATION
  Report Type: Spontaneous
  Country: BR (occurrence: BR)
  Receive Date: 20140610
  Receipt Date: 20140610
  Transmission Date: 20141212
  Serious: Yes (Other)
  Sender: FDA-Public Use
  Company Number: BR-SANOFI-AVENTIS-2013SA063311

PATIENT
  Sex: Female
  Weight: 85 kg

DRUGS (1)
  1. CLEXANE [Suspect]
     Indication: HYPERCOAGULATION
     Route: 058
     Dates: start: 201306

REACTIONS (2)
  - Abortion spontaneous [Unknown]
  - Exposure during pregnancy [Unknown]
